FAERS Safety Report 8621859-8 (Version None)
Quarter: 2012Q3

REPORT INFORMATION
  Report Type: 
  Country: None (occurrence: None)
  Receive Date: 20120825
  Receipt Date: 20120629
  Transmission Date: 20120928
  Serious: No
  Sender: FDA-Public Use
  Company Number: US-009507513-1207USA010503

PATIENT

DRUGS (2)
  1. MIRALAX [Suspect]
     Indication: COLONOSCOPY
     Dosage: UNK, QH
     Route: 048
  2. MIRALAX [Suspect]
     Indication: MEDICAL OBSERVATION

REACTIONS (8)
  - ABDOMINAL PAIN UPPER [None]
  - HEADACHE [None]
  - HYPERHIDROSIS [None]
  - PARAESTHESIA [None]
  - NAUSEA [None]
  - OVERDOSE [None]
  - OFF LABEL USE [None]
  - VOMITING [None]
